FAERS Safety Report 16659028 (Version 2)
Quarter: 2019Q3

REPORT INFORMATION
  Report Type: Report from Study
  Country: None (occurrence: CO)
  Receive Date: 20190801
  Receipt Date: 20190826
  Transmission Date: 20191004
  Serious: Yes (Other)
  Sender: FDA-Public Use
  Company Number: CO-ABBVIE-19K-036-2874142-00

PATIENT
  Age: 46 Year
  Sex: Female
  Weight: 74 kg

DRUGS (2)
  1. HUMIRA [Suspect]
     Active Substance: ADALIMUMAB
     Indication: ANKYLOSING SPONDYLITIS
     Route: 058
     Dates: start: 20130111
  2. HUMIRA [Suspect]
     Active Substance: ADALIMUMAB
     Indication: ANKYLOSING SPONDYLITIS
     Route: 058

REACTIONS (8)
  - Ear infection [Recovering/Resolving]
  - Endometriosis [Recovering/Resolving]
  - Salpingectomy [Recovering/Resolving]
  - Ovarian mass [Unknown]
  - Hysterectomy [Recovering/Resolving]
  - Dysmenorrhoea [Recovering/Resolving]
  - Procedural pain [Recovering/Resolving]
  - Inflammation [Recovering/Resolving]

NARRATIVE: CASE EVENT DATE: 2017
